FAERS Safety Report 7804308-9 (Version None)
Quarter: 2011Q4

REPORT INFORMATION
  Report Type: 
  Country: None (occurrence: None)
  Receive Date: 20111010
  Receipt Date: 20111004
  Transmission Date: 20120403
  Serious: Yes (Death, Other)
  Sender: FDA-Public Use
  Company Number: US-BAYER-2011-073930

PATIENT
  Age: 59 Year
  Sex: Male

DRUGS (4)
  1. VICODIN [Concomitant]
     Dosage: 5-500 MG
  2. PRILOSEC [Concomitant]
     Dosage: 10 MG
  3. NEXAVAR [Suspect]
     Dosage: 400 MG, HS
     Route: 048
     Dates: start: 20110801
  4. NEXAVAR [Suspect]
     Indication: HEPATIC NEOPLASM MALIGNANT
     Dosage: 400 MG, BID
     Route: 048
     Dates: start: 20110801

REACTIONS (9)
  - NAUSEA [None]
  - HYPERSOMNIA [None]
  - DEATH [None]
  - LETHARGY [None]
  - DECREASED APPETITE [None]
  - CONFUSIONAL STATE [None]
  - DYSPHONIA [None]
  - ABDOMINAL PAIN UPPER [None]
  - APHAGIA [None]
